FAERS Safety Report 5848643-2 (Version None)
Quarter: 2008Q3

REPORT INFORMATION
  Report Type: 
  Country: None (occurrence: None)
  Receive Date: 20080818
  Receipt Date: 20080807
  Transmission Date: 20090109
  Serious: Yes (Death)
  Sender: FDA-Public Use
  Company Number: JP-SANOFI-SYNTHELABO-A01200809673

PATIENT
  Age: 70 Year
  Sex: Male

DRUGS (3)
  1. LEUCOVORIN CALCIUM [Concomitant]
     Indication: RECTAL CANCER
     Dosage: UNK
     Route: 041
     Dates: start: 20070712, end: 20070713
  2. ELPLAT [Suspect]
     Indication: RECTAL CANCER
     Dosage: UNK
     Route: 041
     Dates: start: 20070712, end: 20070712
  3. FLUOROURACIL [Concomitant]
     Indication: RECTAL CANCER
     Dosage: IV BOLUS THEN CONTINUOUS INFUSION UNK
     Route: 042
     Dates: start: 20070712, end: 20070713

REACTIONS (1)
  - INTERSTITIAL LUNG DISEASE [None]
